FAERS Safety Report 23636822 (Version 1)
Quarter: 2024Q1

REPORT INFORMATION
  Report Type: Spontaneous
  Country: US (occurrence: US)
  Receive Date: 20240315
  Receipt Date: 20240315
  Transmission Date: 20240410
  Serious: Yes (Hospitalization)
  Sender: FDA-Public Use
  Company Number: US-MYLANLABS-2024M1023878

PATIENT
  Age: 41 Year
  Sex: Female

DRUGS (2)
  1. HYDROCHLOROTHIAZIDE [Suspect]
     Active Substance: HYDROCHLOROTHIAZIDE
     Indication: Hypertension
     Dosage: UNK
     Route: 065
  2. ADENOSINE [Suspect]
     Active Substance: ADENOSINE
     Indication: Tachycardia
     Dosage: 6 MILLIGRAM, TID (THREE TIMES)
     Route: 042

REACTIONS (3)
  - Hypovolaemia [Unknown]
  - Tachycardia [Recovered/Resolved]
  - Drug ineffective [Unknown]
